FAERS Safety Report 14248908 (Version 1)
Quarter: 2017Q4

REPORT INFORMATION
  Report Type: Spontaneous
  Country: US (occurrence: US)
  Receive Date: 20171204
  Receipt Date: 20171204
  Transmission Date: 20180321
  Serious: No
  Sender: FDA-Public Use
  Company Number: US-BAYER-2017-234519

PATIENT
  Sex: Male

DRUGS (1)
  1. MIRALAX [Suspect]
     Active Substance: POLYETHYLENE GLYCOL 3350
     Dosage: UNK 1 CAP FULL
     Route: 065

REACTIONS (4)
  - Incorrect dose administered [Unknown]
  - Inappropriate prescribing [Unknown]
  - Faeces soft [Unknown]
  - Product use issue [Unknown]
